FAERS Safety Report 25840914 (Version 1)
Quarter: 2025Q3

REPORT INFORMATION
  Report Type: Spontaneous
  Country: US (occurrence: None)
  Receive Date: 20250924
  Receipt Date: 20250924
  Transmission Date: 20251021
  Serious: Yes (Hospitalization)
  Sender: FDA-CTU
  Company Number: None

PATIENT
  Age: 68 Year
  Sex: Male
  Weight: 89.3 kg

DRUGS (1)
  1. TEMOZOLOMIDE [Suspect]
     Active Substance: TEMOZOLOMIDE
     Dates: end: 20250830

REACTIONS (11)
  - Urinary retention [None]
  - Pelvic pain [None]
  - Back pain [None]
  - Pyrexia [None]
  - Hypophagia [None]
  - Malaise [None]
  - Malaise [None]
  - Hydronephrosis [None]
  - Ureterolithiasis [None]
  - Urosepsis [None]
  - Enterococcus test positive [None]

NARRATIVE: CASE EVENT DATE: 20250917
